FAERS Safety Report 7459795-5 (Version None)
Quarter: 2011Q2

REPORT INFORMATION
  Report Type: 
  Country: None (occurrence: None)
  Receive Date: 20110505
  Receipt Date: 20110429
  Transmission Date: 20111010
  Serious: Yes (Death, Other)
  Sender: FDA-Public Use
  Company Number: CN-PFIZER INC-2011093399

PATIENT
  Age: 65 Year
  Sex: Male
  Weight: 53 kg

DRUGS (3)
  1. VFEND [Suspect]
     Indication: PULMONARY MYCOSIS
     Dosage: 400 MG, 2X/DAY
     Route: 042
     Dates: start: 20110425, end: 20110426
  2. VFEND [Suspect]
     Dosage: 200 MG, 2X/DAY
     Route: 042
     Dates: start: 20110426, end: 20110427
  3. CASPOFUNGIN [Concomitant]
     Dosage: UNK
     Dates: start: 20110428

REACTIONS (4)
  - VISUAL IMPAIRMENT [None]
  - CLUTTERING [None]
  - OVERDOSE [None]
  - HALLUCINATION [None]
